FAERS Safety Report 5104641-8 (Version None)
Quarter: 2006Q3

REPORT INFORMATION
  Report Type: 
  Country: None (occurrence: None)
  Receive Date: 20060912
  Receipt Date: 20060912
  Transmission Date: 20061208
  Serious: Yes (Life-Threatening, Other)
  Sender: FDA-Public Use
  Company Number: None

PATIENT
  Sex: Female
  Weight: 34.927 kg

DRUGS (1)
  1. PERGOLIDE 0.05 MG IVAX [Suspect]
     Indication: RESTLESS LEGS SYNDROME
     Dosage: 2 PILLS 3 X A DAY PO
     Route: 048
     Dates: start: 20060810, end: 20060816

REACTIONS (2)
  - DRUG INEFFECTIVE [None]
  - THERAPEUTIC RESPONSE UNEXPECTED WITH DRUG SUBSTITUTION [None]
